FAERS Safety Report 7769887-9 (Version None)
Quarter: 2011Q3

REPORT INFORMATION
  Report Type: 
  Country: None (occurrence: None)
  Receive Date: 20110922
  Receipt Date: 20110916
  Transmission Date: 20111222
  Serious: Yes (Hospitalization, Other)
  Sender: FDA-Public Use
  Company Number: CA-ROCHE-803641

PATIENT
  Sex: Male

DRUGS (3)
  1. VALCYTE [Suspect]
     Indication: CHRONIC FATIGUE SYNDROME
     Route: 048
     Dates: start: 20110401, end: 20110902
  2. ATIVAN [Concomitant]
     Indication: DEPRESSION
     Dosage: STOP DATE MENTIONED AS 2011, FREQUENCY:HS PRN
     Route: 048
     Dates: start: 20110401
  3. CYMBALTA [Suspect]
     Indication: DEPRESSION
     Route: 048
     Dates: start: 20110401

REACTIONS (8)
  - FATIGUE [None]
  - SUICIDAL IDEATION [None]
  - PSYCHOTIC DISORDER [None]
  - SCHIZOPHRENIA [None]
  - INSOMNIA [None]
  - CONVULSION [None]
  - ANXIETY [None]
  - DEPRESSION [None]
